FAERS Safety Report 8033279-8 (Version None)
Quarter: 2011Q4

REPORT INFORMATION
  Report Type: 
  Country: None (occurrence: None)
  Receive Date: 20111202
  Receipt Date: 20110517
  Transmission Date: 20120403
  Serious: Yes (Other)
  Sender: FDA-Public Use
  Company Number: WAES 1105USA02743

PATIENT
  Sex: Female

DRUGS (4)
  1. FOSAMAX [Suspect]
     Indication: OSTEOPOROSIS
     Dosage: UNK/UNK/PO
     Route: 048
  2. FOSAMAX [Suspect]
     Indication: OSTEOPENIA
     Dosage: UNK/UNK/PO
     Route: 048
  3. FOSAMAX [Suspect]
     Indication: OSTEOPOROSIS
     Dosage: UNK/UNK/PO
     Route: 048
  4. FOSAMAX [Suspect]
     Indication: OSTEOPENIA
     Dosage: UNK/UNK/PO
     Route: 048

REACTIONS (2)
  - OSTEONECROSIS OF JAW [None]
  - ADVERSE EVENT [None]
